FAERS Safety Report 14210319 (Version 1)
Quarter: 2017Q4

REPORT INFORMATION
  Report Type: Spontaneous
  Country: RO (occurrence: RO)
  Receive Date: 20171121
  Receipt Date: 20171121
  Transmission Date: 20180321
  Serious: Yes (Other)
  Sender: FDA-Public Use
  Company Number: RO-PFIZER INC-2017496491

PATIENT
  Age: 42 Year
  Sex: Female

DRUGS (3)
  1. CRIZOTINIB [Suspect]
     Active Substance: CRIZOTINIB
     Dosage: 250 MG, 2X/DAY
     Route: 048
  2. CRIZOTINIB [Suspect]
     Active Substance: CRIZOTINIB
     Indication: LUNG NEOPLASM
     Dosage: 250 MG, 2X/DAY
     Route: 048
     Dates: end: 201608
  3. CRIZOTINIB [Suspect]
     Active Substance: CRIZOTINIB
     Dosage: 250 MG, DAILY
     Route: 048
     Dates: start: 201609

REACTIONS (7)
  - Renal disorder [Unknown]
  - Visual field defect [Unknown]
  - Bradycardia [Unknown]
  - Interstitial lung disease [Unknown]
  - Haematotoxicity [Unknown]
  - Cardiac failure [Unknown]
  - Transaminases increased [Unknown]
